FAERS Safety Report 13359053 (Version 1)
Quarter: 2017Q1

REPORT INFORMATION
  Report Type: Spontaneous
  Country: US (occurrence: US)
  Receive Date: 20170321
  Receipt Date: 20170321
  Transmission Date: 20170429
  Serious: No
  Sender: FDA-Public Use
  Company Number: None

PATIENT

DRUGS (5)
  1. ACETAMINOPHEN. [Concomitant]
     Active Substance: ACETAMINOPHEN
  2. DARATUMUMAB [Suspect]
     Active Substance: DARATUMUMAB
     Dosage: ?          OTHER FREQUENCY:WEEKLY X2 DOSES;?
     Route: 041
  3. POMALIDOMIDE [Concomitant]
     Active Substance: POMALIDOMIDE
  4. DEXAMETHASONE. [Concomitant]
     Active Substance: DEXAMETHASONE
  5. DIPHENHYDRAMINE. [Concomitant]
     Active Substance: DIPHENHYDRAMINE

REACTIONS (3)
  - Dyspnoea [None]
  - Hypoxia [None]
  - Pneumonitis [None]
